FAERS Safety Report 19100499 (Version 1)
Quarter: 2021Q2

REPORT INFORMATION
  Report Type: Spontaneous
  Country: US (occurrence: US)
  Receive Date: 20210407
  Receipt Date: 20210407
  Transmission Date: 20210717
  Serious: No
  Sender: FDA-Public Use
  Company Number: US-PTC THERAPEUTICS, INC.-US-2020PTC000421

PATIENT
  Sex: Male
  Weight: 19.96 kg

DRUGS (3)
  1. EMFLAZA [Suspect]
     Active Substance: DEFLAZACORT
     Indication: BECKER^S MUSCULAR DYSTROPHY
  2. FLINTSTONES COMPLETE [Concomitant]
     Active Substance: VITAMINS
     Indication: PRODUCT USED FOR UNKNOWN INDICATION
     Route: 065
  3. EMFLAZA [Suspect]
     Active Substance: DEFLAZACORT
     Indication: DUCHENNE MUSCULAR DYSTROPHY
     Dosage: 3 ML EVERY SATURDAY AND SUNDAY
     Route: 048

REACTIONS (6)
  - Muscle spasms [Unknown]
  - Muscle tightness [Unknown]
  - Decreased appetite [Recovered/Resolved]
  - Lethargy [Unknown]
  - Off label use [Unknown]
  - Pallor [Unknown]
